FAERS Safety Report 25662006 (Version 1)
Quarter: 2025Q3

REPORT INFORMATION
  Report Type: Spontaneous
  Country: US (occurrence: US)
  Receive Date: 20250809
  Receipt Date: 20250809
  Transmission Date: 20251020
  Serious: Yes (Other)
  Sender: AMGEN
  Company Number: US-AMGEN-USASP2025155353

PATIENT
  Age: 59 Year
  Sex: Female
  Weight: 91.2 kg

DRUGS (70)
  1. TEPEZZA [Suspect]
     Active Substance: TEPROTUMUMAB-TRBW
     Indication: Endocrine ophthalmopathy
     Dosage: UNK
     Route: 040
  2. TEPEZZA [Suspect]
     Active Substance: TEPROTUMUMAB-TRBW
     Dosage: UNK, Q3WK
     Route: 040
  3. TOPAMAX [Concomitant]
     Active Substance: TOPIRAMATE
     Route: 048
  4. COMBIGAN [Concomitant]
     Active Substance: BRIMONIDINE TARTRATE\TIMOLOL MALEATE
     Dosage: 0.2-0.5 DROP INTO BOTH EYES, BID
  5. REFRESH CELLUVISC [Concomitant]
     Active Substance: CARBOXYMETHYLCELLULOSE SODIUM
     Dosage: 1 DROP INTO BOTH EYES EVERY 2 HOURS IF NEEDED FOR, Q2H
  6. SYSTANE (HYPROMELLOSE 2910 (4000 MPA.S)) [Concomitant]
     Active Substance: HYPROMELLOSE 2910 (4000 MPA.S)
     Dosage: 0.4-0.3%, QID
     Dates: start: 20150112
  7. ZADITOR [Concomitant]
     Active Substance: KETOTIFEN FUMARATE
     Dosage: 0.025% (0.035 %)
     Dates: start: 20190828
  8. REFRESH P.M. [Concomitant]
     Active Substance: MINERAL OIL\PETROLATUM
  9. CALCIUM CITRATE\VITAMIN D [Concomitant]
     Active Substance: CALCIUM CITRATE\VITAMIN D
     Dosage: 315 MG- 250 UNIT, BID
     Dates: start: 20201008
  10. DEXTROMETHORPHAN\GUAIFENESIN [Concomitant]
     Active Substance: DEXTROMETHORPHAN\GUAIFENESIN
     Dosage: UNK UNK, BID
     Dates: start: 20201113
  11. XANAX [Concomitant]
     Active Substance: ALPRAZOLAM
     Dosage: 1 MILLIGRAM, QID
     Dates: start: 20211101
  12. VITAMIN B-COMPLEX [Concomitant]
     Active Substance: DEXPANTHENOL\NIACINAMIDE\PYRIDOXINE HYDROCHLORIDE\RIBOFLAVIN 5^-PHOSPHATE SODIUM\THIAMINE HYDROCHLOR
  13. VITAMIN D3 [Concomitant]
     Active Substance: CHOLECALCIFEROL
     Dates: start: 20220224
  14. VITAMIN B12 [Concomitant]
     Active Substance: CYANOCOBALAMIN
  15. NYSTOP [Concomitant]
     Active Substance: NYSTATIN
     Dosage: APPLY 1 STRIP TOPICALLY TO THE AFFECTED AREA, BID
     Dates: start: 20220922
  16. TESSALON [Concomitant]
     Active Substance: BENZONATATE
     Dosage: 100 MILLIGRAM, TID
     Route: 048
     Dates: start: 20221206
  17. PROTONIX [Concomitant]
     Active Substance: PANTOPRAZOLE SODIUM
     Dosage: 40 MILLIGRAM, BID
     Route: 048
     Dates: start: 20230120
  18. ZETIA [Concomitant]
     Active Substance: EZETIMIBE
     Dosage: 10 MILLIGRAM, QD
     Route: 048
     Dates: start: 20230117
  19. CRESTOR [Concomitant]
     Active Substance: ROSUVASTATIN CALCIUM
     Dosage: 40 MILLIGRAM, QD,  AT BEDTIME
     Route: 048
     Dates: start: 20230120
  20. VITAMINS [Concomitant]
     Active Substance: VITAMINS
     Dosage: UNK UNK, QD
     Route: 048
     Dates: start: 20230305
  21. XOPENEX HFA [Concomitant]
     Active Substance: LEVALBUTEROL TARTRATE
     Dosage: 45 MICROGRAM/ACTUATION, Q4H
     Dates: start: 20230308
  22. XOPENEX HFA [Concomitant]
     Active Substance: LEVALBUTEROL TARTRATE
     Dosage: 45 MICROGRAM/ACTUATION, Q4H
     Dates: start: 20230629
  23. ARMOUR THYROID [Concomitant]
     Active Substance: THYROID, PORCINE
     Dates: start: 20230313
  24. ROBAXIN [Concomitant]
     Active Substance: METHOCARBAMOL
     Dosage: 750 MILLIGRAM, QID
     Route: 048
     Dates: start: 20230322
  25. EPIPEN [Concomitant]
     Active Substance: EPINEPHRINE
     Dates: start: 20230414
  26. TRULICITY [Concomitant]
     Active Substance: DULAGLUTIDE
     Dates: start: 20230418
  27. GLUCOPHAGE [Concomitant]
     Active Substance: METFORMIN HYDROCHLORIDE
     Dosage: 1000 MILLIGRAM, BID
     Dates: start: 20230418
  28. BUMEX [Concomitant]
     Active Substance: BUMETANIDE
     Dosage: 1 MILLIGRAM, QD
     Dates: start: 20230502
  29. DUONEB [Concomitant]
     Active Substance: ALBUTEROL SULFATE\IPRATROPIUM BROMIDE
     Dates: start: 20230530
  30. Narcanti [Concomitant]
     Dates: start: 20230313
  31. ERYTHROMYCIN [Concomitant]
     Active Substance: ERYTHROMYCIN
     Dates: start: 20230208
  32. LOVENOX [Concomitant]
     Active Substance: ENOXAPARIN SODIUM
     Dosage: 100 MILLIGRAM PER MILLILITRE, Q12H
     Dates: start: 20230510
  33. BACITRACIN [Concomitant]
     Active Substance: BACITRACIN
     Dates: start: 20230207
  34. SINGULAIR [Concomitant]
     Active Substance: MONTELUKAST SODIUM
     Route: 048
     Dates: start: 20230602
  35. PLAVIX [Concomitant]
     Active Substance: CLOPIDOGREL BISULFATE
     Dosage: 75 MILLIGRAM, QD
     Dates: start: 20230618
  36. XARELTO [Concomitant]
     Active Substance: RIVAROXABAN
     Dosage: 10 MILLIGRAM, QD
     Dates: start: 20230618
  37. TYLENOL [Concomitant]
     Active Substance: ACETAMINOPHEN
     Dosage: 325 MILLIGRAM, Q4H
     Dates: start: 20230615
  38. ADVIL [Concomitant]
     Active Substance: IBUPROFEN
     Dosage: 200 MILLIGRAM, QH
     Dates: start: 20230615
  39. BANOPHEN [Concomitant]
     Active Substance: DIPHENHYDRAMINE HYDROCHLORIDE
     Dosage: 25 MILLIGRAM, Q12H
     Route: 048
     Dates: start: 20230629
  40. PERCOCET [Concomitant]
     Active Substance: ACETAMINOPHEN\OXYCODONE HYDROCHLORIDE
  41. NYSTATIN [Concomitant]
     Active Substance: NYSTATIN
     Dates: start: 20200713
  42. VOLTAREN [Concomitant]
     Active Substance: DICLOFENAC SODIUM
  43. LOPROX [Concomitant]
     Active Substance: CICLOPIROX\CICLOPIROX OLAMINE
     Dates: start: 20230302
  44. CARAFATE [Concomitant]
     Active Substance: SUCRALFATE
     Dates: start: 20220330
  45. ZOFRAN [Concomitant]
     Active Substance: ONDANSETRON HYDROCHLORIDE
     Dates: start: 20230510
  46. ALBUTEROL [Concomitant]
     Active Substance: ALBUTEROL
     Dates: start: 20230602
  47. ALPRAZOLAM [Concomitant]
     Active Substance: ALPRAZOLAM
  48. INSULIN NOS [Concomitant]
     Active Substance: INSULIN NOS
  49. BENZONATATE [Concomitant]
     Active Substance: BENZONATATE
  50. BRIMONIDINE [Concomitant]
     Active Substance: BRIMONIDINE TARTRATE
  51. BUMETANIDE [Concomitant]
     Active Substance: BUMETANIDE
  52. CICLOPIROX [Concomitant]
     Active Substance: CICLOPIROX
  53. CARBOXYMETHYLCELLULOSE [Concomitant]
     Active Substance: CARBOXYMETHYLCELLULOSE
  54. CLOPIDOGREL [Concomitant]
     Active Substance: CLOPIDOGREL BISULFATE
  55. CYANOCOBALAMIN [Concomitant]
     Active Substance: CYANOCOBALAMIN
  56. DIPHENHYDRAMINE [Concomitant]
     Active Substance: DIPHENHYDRAMINE
  57. DULAGLUTIDE [Concomitant]
     Active Substance: DULAGLUTIDE
  58. EPINEPHRINE [Concomitant]
     Active Substance: EPINEPHRINE
  59. EZETIMIBE [Concomitant]
     Active Substance: EZETIMIBE
  60. FLUCONAZOLE [Concomitant]
     Active Substance: FLUCONAZOLE
  61. KETOTIFEN [Concomitant]
     Active Substance: KETOTIFEN
  62. LEVALBUTEROL [Concomitant]
     Active Substance: LEVALBUTEROL
  63. METFORMIN [Concomitant]
     Active Substance: METFORMIN HYDROCHLORIDE
  64. METHOCARBAMOL [Concomitant]
     Active Substance: METHOCARBAMOL
  65. MONTELUKAST [Concomitant]
     Active Substance: MONTELUKAST
  66. NALOXONE [Concomitant]
     Active Substance: NALOXONE
  67. PANTOPRAZOLE [Concomitant]
     Active Substance: PANTOPRAZOLE
  68. ROSUVASTATIN [Concomitant]
     Active Substance: ROSUVASTATIN
     Dosage: 40 MILLIGRAM, QD
     Route: 048
  69. SUCRALFATE [Concomitant]
     Active Substance: SUCRALFATE
  70. VITAMIN D [Concomitant]
     Active Substance: VITAMIN D NOS

REACTIONS (13)
  - Hypothyroidism [Unknown]
  - Hyperglycaemia [Unknown]
  - Nausea [Unknown]
  - Osteopenia [Unknown]
  - Gastrooesophageal reflux disease [Unknown]
  - Dyspnoea [Unknown]
  - Wheezing [Recovering/Resolving]
  - Back pain [Unknown]
  - Arthralgia [Unknown]
  - Vitamin D deficiency [Unknown]
  - Diarrhoea [Not Recovered/Not Resolved]
  - Nasal congestion [Unknown]
  - Cough [Unknown]
